FAERS Safety Report 9255953 (Version 1)
Quarter: 2013Q2

REPORT INFORMATION
  Report Type: Spontaneous
  Country: ES (occurrence: ES)
  Receive Date: 20130425
  Receipt Date: 20130425
  Transmission Date: 20140414
  Serious: Yes (Other)
  Sender: FDA-Public Use
  Company Number: PHHY2013ES037650

PATIENT
  Sex: Female

DRUGS (7)
  1. SANDIMMUN NEORAL [Suspect]
     Indication: VASCULITIS
     Dosage: 150 MG, QD
     Route: 048
     Dates: start: 20120921
  2. SANDIMMUN NEORAL [Interacting]
     Dosage: 200 MG, QD
     Route: 048
  3. THIAMAZOLE [Interacting]
  4. PREDNISONE [Concomitant]
  5. COLCHICINE [Concomitant]
  6. PENTOXIFYLLINE [Concomitant]
  7. ACETYLSALICYLIC ACID [Concomitant]

REACTIONS (3)
  - Immunosuppressant drug level decreased [Unknown]
  - Drug interaction [Unknown]
  - Ulcer [Unknown]
